FAERS Safety Report 15942069 (Version 1)
Quarter: 2019Q1

REPORT INFORMATION
  Report Type: Spontaneous
  Country: US (occurrence: US)
  Receive Date: 20190210
  Receipt Date: 20190210
  Transmission Date: 20190417
  Serious: No
  Sender: FDA-Public Use
  Company Number: US-TARO-2018TAR00549

PATIENT
  Age: 64 Year
  Sex: Male
  Weight: 136.05 kg

DRUGS (5)
  1. FLUOCINONIDE TOPICAL SOLUTION USP 0.05% [Suspect]
     Active Substance: FLUOCINONIDE
     Indication: PSORIASIS
     Dosage: UNK, 2-3X/DAY TO THE WHOLE BODY AND SCALP
     Route: 061
  2. FLUOCINONIDE CREAM USP 0.05%. [Suspect]
     Active Substance: FLUOCINONIDE
     Indication: PSORIASIS
     Dosage: UNK, 2-3X/DAY TO THE WHOLE BODY AND SCALP
     Route: 061
  3. CLOBETASOL PROPIONATE (GW LABS) [Suspect]
     Active Substance: CLOBETASOL PROPIONATE
     Indication: PSORIASIS
     Dosage: UNK, 2-3X/DAY TO THE WHOLE BODY AND SCALP
     Route: 061
  4. CLOBETASOL PROPIONATE (GW LABS) [Suspect]
     Active Substance: CLOBETASOL PROPIONATE
     Indication: PSORIASIS
     Dosage: UNK, 2-3X/DAY TO THE WHOLE BODY AND SCALP
     Route: 061
  5. CALCIPOTRIENE (PRASCO) [Suspect]
     Active Substance: CALCIPOTRIENE
     Indication: PSORIASIS
     Dosage: UNK, 2-3X/DAY TO THE WHOLE BODY AND SCALP
     Route: 061

REACTIONS (4)
  - Myasthenia gravis [Not Recovered/Not Resolved]
  - Psoriasis [Not Recovered/Not Resolved]
  - Product dose omission [Not Recovered/Not Resolved]
  - Insurance issue [None]
